FAERS Safety Report 15797457 (Version 1)
Quarter: 2019Q1

REPORT INFORMATION
  Report Type: Spontaneous
  Country: FR (occurrence: FR)
  Receive Date: 20190108
  Receipt Date: 20190108
  Transmission Date: 20190417
  Serious: Yes (Other)
  Sender: FDA-Public Use
  Company Number: PHHY2018FR091764

PATIENT
  Age: 50 Year
  Sex: Male

DRUGS (5)
  1. PENICILLIN G SODIUM. [Suspect]
     Active Substance: PENICILLIN G SODIUM
     Indication: UVEITIS
     Dosage: UNK UKN, UNK
     Route: 065
  2. ASPIRIN. [Concomitant]
     Active Substance: ASPIRIN
     Indication: NEUROSYPHILIS
     Dosage: 160 MG, UNK
     Route: 065
  3. COBICISTAT [Suspect]
     Active Substance: COBICISTAT
     Indication: HIV INFECTION
     Dosage: UNK UKN, UNK
     Route: 065
  4. PENICILLIN G SODIUM. [Suspect]
     Active Substance: PENICILLIN G SODIUM
     Indication: NEUROSYPHILIS
     Dosage: UNK UKN, UNK
     Route: 042
  5. ASPIRIN. [Concomitant]
     Active Substance: ASPIRIN
     Indication: UVEITIS

REACTIONS (3)
  - Drug ineffective [Recovered/Resolved]
  - Hemianaesthesia [Recovering/Resolving]
  - Central nervous system vasculitis [Recovering/Resolving]
